FAERS Safety Report 9677571 (Version 1)
Quarter: 2013Q4

REPORT INFORMATION
  Report Type: Spontaneous
  Country: US (occurrence: US)
  Receive Date: 20131108
  Receipt Date: 20131108
  Transmission Date: 20140711
  Serious: No
  Sender: FDA-Public Use
  Company Number: US-009507513-1311USA002012

PATIENT
  Sex: Female

DRUGS (7)
  1. REMERON [Suspect]
     Indication: DEPRESSION
     Dosage: 15 MG, UNK
     Route: 048
  2. REMERON [Suspect]
     Indication: WEIGHT DECREASED
  3. SINEMET [Concomitant]
  4. MIRAPEX [Concomitant]
  5. NAMENDA [Concomitant]
  6. METOPROLOL [Concomitant]
  7. VITAMIN D (UNSPECIFIED) [Concomitant]

REACTIONS (2)
  - Weight decreased [Not Recovered/Not Resolved]
  - Drug ineffective for unapproved indication [Not Recovered/Not Resolved]
